FAERS Safety Report 22082139 (Version 1)
Quarter: 2023Q1

REPORT INFORMATION
  Report Type: Spontaneous
  Country: US (occurrence: US)
  Receive Date: 20230310
  Receipt Date: 20230310
  Transmission Date: 20230417
  Serious: No
  Sender: FDA-Public Use
  Company Number: US-VIIV HEALTHCARE LIMITED-US2023AMR032835

PATIENT

DRUGS (3)
  1. RILPIVIRINE [Suspect]
     Active Substance: RILPIVIRINE
     Indication: HIV infection
     Dosage: UNK UNK, Z (EVERY 2 MONTHS)
     Route: 065
     Dates: start: 202203
  2. CABOTEGRAVIR [Suspect]
     Active Substance: CABOTEGRAVIR
     Indication: HIV infection
     Dosage: UNK UNK, Z (EVERY 2 MONTHS)
     Route: 065
     Dates: start: 202203
  3. BIKTARVY [Concomitant]
     Active Substance: BICTEGRAVIR SODIUM\EMTRICITABINE\TENOFOVIR ALAFENAMIDE FUMARATE
     Indication: HIV infection
     Dosage: 1 DF, QD, DAILY PILL
     Route: 065

REACTIONS (4)
  - Viral load increased [Unknown]
  - Viral mutation identified [Unknown]
  - Virologic failure [Unknown]
  - Off label use [Unknown]

NARRATIVE: CASE EVENT DATE: 20220301
